FAERS Safety Report 9254881 (Version 1)
Quarter: 2013Q1

REPORT INFORMATION
  Report Type: Spontaneous
  Country: US (occurrence: None)
  Receive Date: 20121212
  Receipt Date: 20121212
  Transmission Date: 20140127
  Serious: Yes (Other)
  Sender: FDA-Public Use
  Company Number: MXPG20120001

PATIENT
  Sex: Female

DRUGS (7)
  1. MEDROXYPROGESTERONE ACETATE [Suspect]
     Indication: PRODUCT USED FOR UNKNOWN INDICATION
  2. ESTROPIPATE [Suspect]
  3. PREMARIN [Suspect]
  4. PROVERA [Suspect]
     Dates: start: 1994, end: 2000
  5. ESTROGENS ESTERFIED/METHYLTESTOSTERONE [Suspect]
     Dates: start: 1994, end: 2000
  6. ORTHO-EST [Suspect]
  7. CYCRIN [Suspect]
     Indication: PRODUCT USED FOR UNKNOWN INDICATION

REACTIONS (1)
  - Breast cancer [None]
